FAERS Safety Report 4602174-6 (Version None)
Quarter: 2005Q2

REPORT INFORMATION
  Report Type: 
  Country: None (occurrence: None)
  Receive Date: 20050215
  Receipt Date: 20040910
  Transmission Date: 20051028
  Serious: Yes (Hospitalization)
  Sender: FDA-Public Use
  Company Number: MC200400527

PATIENT
  Age: 61 Year
  Sex: Male
  Weight: 72 kg

DRUGS (2)
  1. ANGIOMAX [Suspect]
     Indication: HEPARIN-INDUCED THROMBOCYTOPENIA
     Dosage: 1 MG/KG, BOLUS, IV BOLUS
     Route: 040
     Dates: start: 20040909, end: 20040909
  2. ANGIOMAX [Suspect]
     Indication: HEPARIN-INDUCED THROMBOCYTOPENIA
     Dosage: 0.25 MG/KG/HR, INTRAVENOUS
     Route: 042
     Dates: start: 20040909, end: 20040909

REACTIONS (2)
  - CARDIAC TAMPONADE [None]
  - INTERNATIONAL NORMALISED RATIO INCREASED [None]
